FAERS Safety Report 25851970 (Version 1)
Quarter: 2025Q3

REPORT INFORMATION
  Report Type: Spontaneous
  Country: US (occurrence: None)
  Receive Date: 20250925
  Receipt Date: 20250925
  Transmission Date: 20251020
  Serious: Yes (Hospitalization)
  Sender: FDA-CTU
  Company Number: None

PATIENT
  Age: 54 Year
  Sex: Female

DRUGS (1)
  1. IBSRELA [Suspect]
     Active Substance: TENAPANOR HYDROCHLORIDE
     Indication: Crohn^s disease
     Dosage: 50 BID ORAL
     Route: 048
     Dates: start: 20250903

REACTIONS (4)
  - Abdominal distension [None]
  - Abdominal pain upper [None]
  - Constipation [None]
  - Therapy interrupted [None]
